FAERS Safety Report 10179889 (Version 1)
Quarter: 2014Q2

REPORT INFORMATION
  Report Type: Spontaneous
  Country: GB (occurrence: GB)
  Receive Date: 20140519
  Receipt Date: 20140519
  Transmission Date: 20141212
  Serious: Yes (Life-Threatening)
  Sender: FDA-Public Use
  Company Number: GB-PFIZER INC-2014135505

PATIENT
  Age: 45 Year
  Sex: Female

DRUGS (5)
  1. PREGABALIN [Suspect]
     Indication: BACK PAIN
     Dosage: UNK
     Dates: start: 20131001, end: 20131007
  2. NAPROXEN [Concomitant]
     Dosage: UNK
  3. CODEINE [Concomitant]
     Dosage: UNK
  4. PARACETAMOL [Concomitant]
     Dosage: UNK
  5. LANSOPRAZOLE [Concomitant]
     Dosage: UNK

REACTIONS (4)
  - Suicidal ideation [Recovered/Resolved]
  - Self-injurious ideation [Recovered/Resolved]
  - Depressed mood [Recovered/Resolved]
  - Anxiety [Recovered/Resolved]
